FAERS Safety Report 7458942-9 (Version None)
Quarter: 2011Q2

REPORT INFORMATION
  Report Type: 
  Country: None (occurrence: None)
  Receive Date: 20110504
  Receipt Date: 20100724
  Transmission Date: 20111010
  Serious: No
  Sender: FDA-Public Use
  Company Number: US-SANOFI-AVENTIS-2010SA045383

PATIENT
  Age: 79 Year
  Sex: Female

DRUGS (3)
  1. OPTICLICK [Suspect]
     Dates: start: 20090101
  2. LANTUS [Suspect]
     Dosage: FREQUENCY: REPORTED AS EVERY NIGHT
     Route: 058
  3. APIDRA [Suspect]
     Dosage: ABOUT EVERY 2 HOURS DOSE:20 UNIT(S)
     Route: 058
     Dates: start: 20090101

REACTIONS (3)
  - LARYNGITIS [None]
  - PHARYNGITIS [None]
  - BLOOD GLUCOSE INCREASED [None]
